FAERS Safety Report 5398555-6 (Version None)
Quarter: 2007Q3

REPORT INFORMATION
  Report Type: 
  Country: None (occurrence: None)
  Receive Date: 20070726
  Receipt Date: 20060627
  Transmission Date: 20080115
  Serious: No
  Sender: FDA-Public Use
  Company Number: US-AMGEN-KDL184740

PATIENT
  Sex: Female
  Weight: 77.2 kg

DRUGS (7)
  1. PROCRIT [Suspect]
     Indication: ANAEMIA
     Dates: start: 20060328
  2. LANTUS [Concomitant]
  3. HUMALOG [Concomitant]
  4. LEVOXYL [Concomitant]
  5. LASIX [Concomitant]
  6. DARVOCET [Concomitant]
  7. ASPIRIN [Concomitant]

REACTIONS (3)
  - ARTHRALGIA [None]
  - GAIT DISTURBANCE [None]
  - MUSCLE SPASMS [None]
